FAERS Safety Report 5694290-5 (Version None)
Quarter: 2008Q2

REPORT INFORMATION
  Report Type: 
  Country: None (occurrence: None)
  Receive Date: 20080404
  Receipt Date: 20080327
  Transmission Date: 20081010
  Serious: Yes (Life-Threatening)
  Sender: FDA-Public Use
  Company Number: RU-JNJFOC-20080307020

PATIENT
  Sex: Male
  Weight: 98 kg

DRUGS (2)
  1. DORIPENEM [Suspect]
     Route: 041
  2. DORIPENEM [Suspect]
     Indication: DRUG USE FOR UNKNOWN INDICATION
     Route: 041

REACTIONS (2)
  - HAEMORRHAGE [None]
  - RENAL FAILURE [None]
